FAERS Safety Report 7282012-6 (Version None)
Quarter: 2011Q1

REPORT INFORMATION
  Report Type: 
  Country: None (occurrence: None)
  Receive Date: 20110208
  Receipt Date: 20101217
  Transmission Date: 20110831
  Serious: Yes (Other)
  Sender: FDA-Public Use
  Company Number: GXKR2010BR11085

PATIENT
  Sex: Female

DRUGS (2)
  1. RIVOTRIL [Interacting]
     Indication: INSOMNIA
     Dosage: 1 MG, QD
     Route: 048
  2. MIRTAZAPINE [Suspect]
     Indication: DEPRESSION
     Dosage: 30 MG, QD
     Route: 048
     Dates: start: 20100819, end: 20100930

REACTIONS (4)
  - DRUG EXPOSURE DURING PREGNANCY [None]
  - ABDOMINAL PAIN [None]
  - MENSTRUATION DELAYED [None]
  - ABORTION SPONTANEOUS [None]
